FAERS Safety Report 11250071 (Version 4)
Quarter: 2015Q3

REPORT INFORMATION
  Report Type: Spontaneous
  Country: US (occurrence: US)
  Receive Date: 20150708
  Receipt Date: 20150723
  Transmission Date: 20151125
  Serious: No
  Sender: FDA-Public Use
  Company Number: US-TEVA-575679USA

PATIENT
  Sex: Female

DRUGS (1)
  1. COPAXONE [Suspect]
     Active Substance: GLATIRAMER ACETATE
     Indication: MULTIPLE SCLEROSIS
     Dosage: UNKNOWN DOSE STRENGTH

REACTIONS (10)
  - Joint instability [Unknown]
  - Affect lability [Unknown]
  - Crying [Unknown]
  - Scratch [Unknown]
  - Incorrect route of drug administration [Unknown]
  - Pain [Unknown]
  - Pain in extremity [Unknown]
  - Arthralgia [Unknown]
  - Aggression [Unknown]
  - Adverse event [Unknown]

NARRATIVE: CASE EVENT DATE: 201506
